FAERS Safety Report 9422905 (Version 2)
Quarter: 2013Q4

REPORT INFORMATION
  Report Type: Spontaneous
  Country: IT (occurrence: IT)
  Receive Date: 20130726
  Receipt Date: 20131003
  Transmission Date: 20140711
  Serious: Yes (Hospitalization)
  Sender: FDA-Public Use
  Company Number: IT-JNJFOC-20130712823

PATIENT
  Age: 61 Year
  Sex: Male
  Weight: 86 kg

DRUGS (7)
  1. INFLIXIMAB, RECOMBINANT [Suspect]
     Indication: COLITIS ULCERATIVE
     Dosage: THE PATIENT HAD RECEIVED APPROXIMATELY 2 INFLIXIMAB INFUSIONS
     Route: 042
     Dates: start: 20130516
  2. INFLIXIMAB, RECOMBINANT [Suspect]
     Indication: COLITIS ULCERATIVE
     Route: 042
     Dates: start: 20130530
  3. INSULIN [Concomitant]
     Indication: DIABETES MELLITUS
     Route: 065
  4. DOXAZOSIN [Concomitant]
     Indication: HYPERTENSION
     Route: 065
  5. ASACOL [Concomitant]
     Indication: COLITIS ULCERATIVE
     Dosage: STRENGTH 800 MG
     Route: 048
  6. APIDRA [Concomitant]
     Indication: DIABETES MELLITUS
     Route: 065
  7. LERCANIDIPINE [Concomitant]
     Indication: HYPERTENSION
     Route: 065

REACTIONS (2)
  - Interstitial lung disease [Recovered/Resolved]
  - Alveolitis [Recovered/Resolved]
